FAERS Safety Report 10064138 (Version 1)
Quarter: 2014Q2

REPORT INFORMATION
  Report Type: Spontaneous
  Country: US (occurrence: None)
  Receive Date: 20140404
  Receipt Date: 20140404
  Transmission Date: 20141212
  Serious: Yes (Death)
  Sender: FDA-Public Use
  Company Number: UTC-046559

PATIENT
  Age: 60 Year
  Sex: Female
  Weight: 56.81 kg

DRUGS (1)
  1. REMODULIN [Suspect]
     Indication: PULMONARY ARTERIAL HYPERTENSION
     Dosage: 50.256 UG/KG (0.0349 UG/KG. 1 IN 1 MIN),SUBCUTANEOUS
     Route: 058
     Dates: start: 20131112

REACTIONS (1)
  - Death [None]
